FAERS Safety Report 12265525 (Version 1)
Quarter: 2016Q2

REPORT INFORMATION
  Report Type: Spontaneous
  Country: US (occurrence: US)
  Receive Date: 20160413
  Receipt Date: 20160413
  Transmission Date: 20160815
  Serious: Yes (Other)
  Sender: FDA-Public Use
  Company Number: US-MYLANLABS-2016M1014596

PATIENT

DRUGS (1)
  1. LEVETIRACETAM. [Suspect]
     Active Substance: LEVETIRACETAM
     Dosage: 1000 MG, BID
     Dates: start: 2013

REACTIONS (6)
  - Infection [Recovered/Resolved]
  - Dermal cyst [Recovered/Resolved]
  - Generalised tonic-clonic seizure [Recovered/Resolved]
  - Irritability [Unknown]
  - Seasonal allergy [Recovered/Resolved]
  - Mood altered [Unknown]

NARRATIVE: CASE EVENT DATE: 201501
